FAERS Safety Report 5820095-8 (Version None)
Quarter: 2008Q3

REPORT INFORMATION
  Report Type: 
  Country: None (occurrence: None)
  Receive Date: 20080723
  Receipt Date: 20080723
  Transmission Date: 20090109
  Serious: Yes (Life-Threatening, Hospitalization)
  Sender: FDA-Public Use
  Company Number: None

PATIENT
  Age: 33 Year
  Sex: Male
  Weight: 85.2762 kg

DRUGS (1)
  1. GAMMAGARD S/D [Suspect]
     Indication: INFECTION
     Dosage: 40 GRAMS  IV
     Route: 042
     Dates: start: 20080603, end: 20080603

REACTIONS (3)
  - CAROTID ARTERY THROMBOSIS [None]
  - CEREBRAL ARTERY THROMBOSIS [None]
  - CEREBROVASCULAR ACCIDENT [None]
